FAERS Safety Report 24674443 (Version 1)
Quarter: 2024Q4

REPORT INFORMATION
  Report Type: Spontaneous
  Country: GB (occurrence: GB)
  Receive Date: 20241128
  Receipt Date: 20241128
  Transmission Date: 20250115
  Serious: Yes (Life-Threatening, Hospitalization, Other)
  Sender: MACLEODS
  Company Number: GB-MACLEODS PHARMA-MAC2018013348

PATIENT

DRUGS (2)
  1. RIVASTIGMINE [Suspect]
     Active Substance: RIVASTIGMINE
     Indication: Dementia Alzheimer^s type
     Dosage: 9.5 MILLIGRAM, 24 HOURS, TRANSDERMAL PATCH
     Route: 062
  2. RIVASTIGMINE [Suspect]
     Active Substance: RIVASTIGMINE
     Dosage: 4.6 MILLIGRAM, 24 HOURS, TRANSDERMAL PATCH
     Route: 062
     Dates: start: 201310

REACTIONS (7)
  - Atrioventricular block [Recovered/Resolved]
  - Femoral neck fracture [Recovered/Resolved]
  - Electrocardiogram PR prolongation [Recovered/Resolved]
  - Hip fracture [Recovered/Resolved]
  - Bradycardia [Unknown]
  - Fall [Unknown]
  - Hypertension [Unknown]
